FAERS Safety Report 19073589 (Version 2)
Quarter: 2021Q2

REPORT INFORMATION
  Report Type: Report from Study
  Country: IT (occurrence: IT)
  Receive Date: 20210330
  Receipt Date: 20210402
  Transmission Date: 20210717
  Serious: Yes (Death)
  Sender: FDA-Public Use
  Company Number: IT-PFIZER INC-2021338647

PATIENT
  Age: 58 Year
  Sex: Male

DRUGS (3)
  1. CISPLATIN. [Suspect]
     Active Substance: CISPLATIN
     Indication: GASTRIC CANCER
     Dosage: 75 MG/M2, CYCLIC (4?H IV INFUSION, DAY 1, FOUR 21 D/CYCLES)
     Route: 042
  2. FLUOROURACIL. [Suspect]
     Active Substance: FLUOROURACIL
     Indication: GASTRIC CANCER
     Dosage: 300 MG/M2, CYCLIC (CONTINUOUS IV INFUSION, DAYS 1 TO 14, FOUR 21 D/CYCLES)
     Route: 042
  3. DOCETAXEL. [Suspect]
     Active Substance: DOCETAXEL
     Indication: GASTRIC CANCER
     Dosage: 75 MG/M2, CYCLIC (1?H IV INFUSION, DAY 1, FOUR 21 D/CYCLES)
     Route: 042

REACTIONS (3)
  - Multiple organ dysfunction syndrome [Fatal]
  - Arrhythmia [Fatal]
  - Lower respiratory tract infection [Fatal]
